FAERS Safety Report 25475361 (Version 2)
Quarter: 2025Q4

REPORT INFORMATION
  Report Type: Spontaneous
  Country: US (occurrence: US)
  Receive Date: 20250624
  Receipt Date: 20251120
  Transmission Date: 20260118
  Serious: No
  Sender: PFIZER
  Company Number: US-PFIZER INC-PV202500073754

PATIENT
  Age: 61 Year
  Sex: Female

DRUGS (1)
  1. XELJANZ XR [Suspect]
     Active Substance: TOFACITINIB CITRATE
     Indication: Rheumatoid arthritis
     Dosage: 11 MG

REACTIONS (6)
  - Abdominal pain [Recovered/Resolved]
  - Hunger [Recovered/Resolved]
  - Feeling abnormal [Recovered/Resolved]
  - Headache [Recovered/Resolved]
  - Nausea [Recovered/Resolved]
  - Tinnitus [Unknown]
